FAERS Safety Report 9250549 (Version 1)
Quarter: 2013Q1

REPORT INFORMATION
  Report Type: Spontaneous
  Country: US (occurrence: None)
  Receive Date: 20130305
  Receipt Date: 20130305
  Transmission Date: 20140127
  Serious: Yes (Other)
  Sender: FDA-Public Use
  Company Number: 163-21880-12063144

PATIENT
  Age: 60 Year
  Sex: Male
  Weight: 84.82 kg

DRUGS (6)
  1. REVLIMID [Suspect]
     Indication: PLASMA CELL MYELOMA
     Dosage: 25 MG, QD X 21 DAYS, PO
     Route: 048
     Dates: start: 20120614
  2. DEXAMETHASONE (DEXAMETHASONE) [Suspect]
  3. MELOXICAM (MELOXICAM) [Suspect]
  4. LEVEMIR (INSULIN DETEMIR) [Suspect]
  5. METFORMIN (METFORMIN) [Suspect]
  6. RANITIDINE (RANITIDINE) [Suspect]

REACTIONS (10)
  - Hypersensitivity [None]
  - Dyspnoea [None]
  - Chest discomfort [None]
  - Facial pain [None]
  - Local swelling [None]
  - Dizziness [None]
  - Rash generalised [None]
  - Urticaria [None]
  - Oropharyngeal pain [None]
  - Pruritus [None]
